FAERS Safety Report 19067676 (Version 1)
Quarter: 2021Q1

REPORT INFORMATION
  Report Type: Spontaneous
  Country: US (occurrence: US)
  Receive Date: 20210328
  Receipt Date: 20210328
  Transmission Date: 20210420
  Serious: Yes (Hospitalization)
  Sender: FDA-Public Use
  Company Number: None

PATIENT
  Age: 29 Year
  Sex: Female
  Weight: 132 kg

DRUGS (1)
  1. BAMLANIVIMAB. [Suspect]
     Active Substance: BAMLANIVIMAB
     Indication: COVID-19
     Dosage: ?          OTHER FREQUENCY:ONCE;?
     Route: 042
     Dates: start: 20210326, end: 20210326

REACTIONS (10)
  - Nausea [None]
  - Oxygen saturation decreased [None]
  - Anxiety [None]
  - Dyspnoea [None]
  - Chest discomfort [None]
  - Pneumonia viral [None]
  - Hypersensitivity [None]
  - Pleuritic pain [None]
  - Chest pain [None]
  - Lung opacity [None]

NARRATIVE: CASE EVENT DATE: 20210326
